FAERS Safety Report 9158117 (Version 1)
Quarter: 2013Q1

REPORT INFORMATION
  Report Type: Spontaneous
  Country: JP (occurrence: JP)
  Receive Date: 20130312
  Receipt Date: 20130312
  Transmission Date: 20140127
  Serious: Yes (Hospitalization)
  Sender: FDA-Public Use
  Company Number: JP-GLAXOSMITHKLINE-B0871552A

PATIENT
  Age: 75 Year
  Sex: Female

DRUGS (2)
  1. PAXIL [Suspect]
     Indication: DEPRESSION
     Route: 048
     Dates: start: 20130220
  2. BENZODIAZEPIN [Concomitant]
     Indication: ANXIETY
     Route: 065

REACTIONS (4)
  - Serotonin syndrome [Not Recovered/Not Resolved]
  - Delirium [Unknown]
  - Tremor [Unknown]
  - Overdose [Not Recovered/Not Resolved]
